FAERS Safety Report 6936226-2 (Version None)
Quarter: 2010Q3

REPORT INFORMATION
  Report Type: 
  Country: None (occurrence: None)
  Receive Date: 20100823
  Receipt Date: 20100811
  Transmission Date: 20110219
  Serious: Yes (Hospitalization, Other)
  Sender: FDA-Public Use
  Company Number: US-PFIZER INC-2007091497

PATIENT
  Age: 80 Year
  Sex: Female

DRUGS (4)
  1. NEURONTIN [Suspect]
     Indication: NEUROPATHY PERIPHERAL
     Dosage: 300 MG, 2X/DAY
     Dates: start: 20040101
  2. NEURONTIN [Suspect]
     Dosage: UNK
     Dates: start: 20040101, end: 20100101
  3. LYRICA [Suspect]
     Dosage: 50 MG, 2X/DAY
     Dates: start: 20080701, end: 20090101
  4. CATAPRES [Suspect]
     Indication: BLOOD PRESSURE
     Dosage: UNK

REACTIONS (24)
  - AGITATION [None]
  - CATARACT [None]
  - CONFUSIONAL STATE [None]
  - CYSTITIS [None]
  - DIARRHOEA [None]
  - DRY MOUTH [None]
  - DYSPHONIA [None]
  - EXTRASYSTOLES [None]
  - FALL [None]
  - GAIT DISTURBANCE [None]
  - HEART RATE IRREGULAR [None]
  - HYPERTENSION [None]
  - INFLUENZA [None]
  - MUSCLE INJURY [None]
  - NEUROPATHY PERIPHERAL [None]
  - OEDEMA PERIPHERAL [None]
  - PAIN [None]
  - PARAESTHESIA [None]
  - PNEUMONIA [None]
  - THERAPEUTIC PROCEDURE [None]
  - THROMBOSIS [None]
  - VISION BLURRED [None]
  - WEIGHT DECREASED [None]
  - WEIGHT INCREASED [None]
